FAERS Safety Report 6277226-8 (Version None)
Quarter: 2009Q3

REPORT INFORMATION
  Report Type: 
  Country: None (occurrence: None)
  Receive Date: 20090722
  Receipt Date: 20090223
  Transmission Date: 20100115
  Serious: Yes (Death)
  Sender: FDA-Public Use
  Company Number: US-BRISTOL-MYERS SQUIBB COMPANY-14515654

PATIENT
  Age: 80 Year
  Sex: Male

DRUGS (2)
  1. COUMADIN [Suspect]
  2. ASPIRIN [Suspect]
     Indication: HEADACHE

REACTIONS (2)
  - HAEMORRHAGE [None]
  - HEADACHE [None]
